FAERS Safety Report 5340924-4 (Version None)
Quarter: 2007Q2

REPORT INFORMATION
  Report Type: 
  Country: None (occurrence: None)
  Receive Date: 20070405
  Receipt Date: 20061102
  Transmission Date: 20071010
  Serious: No
  Sender: FDA-Public Use
  Company Number: US200605004088

PATIENT
  Age: 54 Year
  Sex: Female

DRUGS (2)
  1. HUMALOG MIX 75/25 [Suspect]
     Indication: DIABETES MELLITUS
     Dosage: 75 U, 2/D
  2. CYMBALTA [Suspect]
     Indication: DEPRESSION

REACTIONS (6)
  - INCORRECT DOSE ADMINISTERED [None]
  - INJECTION SITE PAIN [None]
  - MEMORY IMPAIRMENT [None]
  - PAIN [None]
  - RHEUMATOID ARTHRITIS [None]
  - WEIGHT INCREASED [None]
